FAERS Safety Report 13488208 (Version 1)
Quarter: 2017Q2

REPORT INFORMATION
  Report Type: Spontaneous
  Country: US (occurrence: US)
  Receive Date: 20170426
  Receipt Date: 20170426
  Transmission Date: 20170830
  Serious: No
  Sender: FDA-Public Use
  Company Number: US-ALKERMES INC.-ALK-2016-003765

PATIENT
  Age: 39 Year
  Sex: Male
  Weight: 76.64 kg

DRUGS (3)
  1. ALBUTEROL. [Concomitant]
     Active Substance: ALBUTEROL
     Indication: PRODUCT USED FOR UNKNOWN INDICATION
     Dosage: UNK, PRN
  2. VIVITROL [Suspect]
     Active Substance: NALTREXONE
     Indication: DRUG USE DISORDER
     Dosage: 380 MG, QMO
     Route: 030
     Dates: start: 201603
  3. TRAZODONE [Concomitant]
     Active Substance: TRAZODONE HYDROCHLORIDE
     Indication: POST-TRAUMATIC STRESS DISORDER
     Dosage: UNK

REACTIONS (13)
  - Lack of injection site rotation [Unknown]
  - Road traffic accident [Unknown]
  - Fall [Unknown]
  - Lower respiratory tract infection [Unknown]
  - Sputum discoloured [Unknown]
  - Injection site reaction [Unknown]
  - Foot fracture [Unknown]
  - Productive cough [Unknown]
  - Joint dislocation [Unknown]
  - Skin abrasion [Unknown]
  - Injection site mass [Unknown]
  - Muscle rupture [Unknown]
  - Injection site pain [Unknown]

NARRATIVE: CASE EVENT DATE: 201603
